FAERS Safety Report 16056763 (Version 1)
Quarter: 2019Q1

REPORT INFORMATION
  Report Type: Spontaneous
  Country: DE (occurrence: DE)
  Receive Date: 20190311
  Receipt Date: 20190311
  Transmission Date: 20190418
  Serious: Yes (Hospitalization, Other)
  Sender: FDA-Public Use
  Company Number: DE-PFIZER INC-2019100092

PATIENT
  Age: 52 Year
  Sex: Female
  Weight: 85.6 kg

DRUGS (4)
  1. NEULASTA [Suspect]
     Active Substance: PEGFILGRASTIM
     Dosage: 6 MG, UNK
     Route: 058
     Dates: start: 20181214
  2. NEULASTA [Suspect]
     Active Substance: PEGFILGRASTIM
     Dosage: 6 MG, UNK ^ON-BODY INJECTOR^
     Route: 058
  3. EPIRUBICIN HCL [Suspect]
     Active Substance: EPIRUBICIN HYDROCHLORIDE
     Indication: BREAST CANCER
     Dosage: 182 MG, CYCLIC (Q2WK)
     Route: 065
     Dates: start: 20181213
  4. CYCLOPHOSPHAMIDE. [Suspect]
     Active Substance: CYCLOPHOSPHAMIDE
     Indication: BREAST CANCER
     Dosage: 1188 MG, CYCLIC (Q2WK)
     Route: 065
     Dates: start: 20181213

REACTIONS (5)
  - General physical health deterioration [Unknown]
  - Febrile neutropenia [Not Recovered/Not Resolved]
  - Venous thrombosis [Unknown]
  - Platelet count decreased [Unknown]
  - White blood cell count decreased [Unknown]

NARRATIVE: CASE EVENT DATE: 201812
